FAERS Safety Report 16460704 (Version 2)
Quarter: 2019Q3

REPORT INFORMATION
  Report Type: Report from Study
  Country: None (occurrence: US)
  Receive Date: 20190620
  Receipt Date: 20190718
  Transmission Date: 20191004
  Serious: No
  Sender: FDA-Public Use
  Company Number: US-ABBVIE-19K-163-2827019-00

PATIENT
  Age: 52 Year
  Sex: Male
  Weight: 106.69 kg

DRUGS (3)
  1. HUMIRA [Suspect]
     Active Substance: ADALIMUMAB
     Dosage: CITRATE FREE
     Route: 058
     Dates: start: 201907
  2. BENICAR [Concomitant]
     Active Substance: OLMESARTAN MEDOXOMIL
     Indication: HYPERTENSION
  3. HUMIRA [Suspect]
     Active Substance: ADALIMUMAB
     Indication: PSORIASIS
     Dosage: CITRATE FREE
     Route: 058
     Dates: start: 201902, end: 201906

REACTIONS (2)
  - Skin exfoliation [Not Recovered/Not Resolved]
  - Pruritus [Unknown]

NARRATIVE: CASE EVENT DATE: 201906
